FAERS Safety Report 14970462 (Version 1)
Quarter: 2018Q2

REPORT INFORMATION
  Report Type: Spontaneous
  Country: US (occurrence: US)
  Receive Date: 20180604
  Receipt Date: 20180604
  Transmission Date: 20180711
  Serious: No
  Sender: FDA-Public Use
  Company Number: US-ALLERGAN-1820425US

PATIENT
  Age: 23 Year
  Sex: Female
  Weight: 48.53 kg

DRUGS (1)
  1. KYBELLA [Suspect]
     Active Substance: DEOXYCHOLIC ACID
     Indication: FAT TISSUE INCREASED
     Dosage: 4 VIALS SINGLE
     Route: 058
     Dates: start: 20180217, end: 20180217

REACTIONS (5)
  - Facial paresis [Not Recovered/Not Resolved]
  - Off label use [Unknown]
  - Nerve injury [Not Recovered/Not Resolved]
  - Overdose [Unknown]
  - Swelling [Not Recovered/Not Resolved]

NARRATIVE: CASE EVENT DATE: 20180217
